FAERS Safety Report 14832027 (Version 1)
Quarter: 2018Q2

REPORT INFORMATION
  Report Type: Spontaneous
  Country: RU (occurrence: RU)
  Receive Date: 20180501
  Receipt Date: 20180501
  Transmission Date: 20180711
  Serious: Yes (Death, Hospitalization)
  Sender: FDA-Public Use
  Company Number: RU-ASTRAZENECA-2017SE81255

PATIENT
  Age: 92 Year
  Sex: Female
  Weight: 55 kg

DRUGS (5)
  1. NORMODIPIN [Concomitant]
  2. MONOPRIL [Concomitant]
     Active Substance: FOSINOPRIL SODIUM
  3. BRILINTA [Suspect]
     Active Substance: TICAGRELOR
     Indication: MYOCARDIAL INFARCTION
     Route: 048
     Dates: start: 201704, end: 201708
  4. CARDIOMAGNYL [Concomitant]
     Active Substance: ASPIRIN\MAGNESIUM HYDROXIDE
  5. METOPROLOL TARTRATE. [Concomitant]
     Active Substance: METOPROLOL TARTRATE

REACTIONS (8)
  - Contusion [Not Recovered/Not Resolved]
  - Death [Fatal]
  - Traumatic haemorrhage [Unknown]
  - Fall [Unknown]
  - Gingival bleeding [Recovered/Resolved]
  - Epistaxis [Recovered/Resolved]
  - Face injury [Unknown]
  - Haematoma [Recovered/Resolved]

NARRATIVE: CASE EVENT DATE: 201704
